FAERS Safety Report 15234693 (Version 2)
Quarter: 2018Q3

REPORT INFORMATION
  Report Type: Report from Study
  Country: None (occurrence: CA)
  Receive Date: 20180803
  Receipt Date: 20180905
  Transmission Date: 20181010
  Serious: Yes (Hospitalization)
  Sender: FDA-Public Use
  Company Number: CA-ABBVIE-18K-028-2417836-00

PATIENT
  Age: 44 Year
  Sex: Male
  Weight: 90 kg

DRUGS (1)
  1. HUMIRA [Suspect]
     Active Substance: ADALIMUMAB
     Indication: CROHN^S DISEASE
     Route: 058
     Dates: start: 20180711, end: 20180711

REACTIONS (12)
  - Fatigue [Not Recovered/Not Resolved]
  - C-reactive protein increased [Recovered/Resolved]
  - Viral infection [Recovered/Resolved]
  - Pyrexia [Recovered/Resolved]
  - Crohn^s disease [Unknown]
  - Oral mucosal blistering [Unknown]
  - Back pain [Recovering/Resolving]
  - Vomiting [Recovered/Resolved]
  - Malaise [Not Recovered/Not Resolved]
  - Chills [Recovered/Resolved]
  - Migraine [Not Recovered/Not Resolved]
  - Gastrointestinal mucosa hyperaemia [Unknown]

NARRATIVE: CASE EVENT DATE: 201807
